FAERS Safety Report 11160252 (Version 1)
Quarter: 2015Q2

REPORT INFORMATION
  Report Type: Report from Study
  Country: US (occurrence: US)
  Receive Date: 20150603
  Receipt Date: 20150603
  Transmission Date: 20150821
  Serious: Yes (Other)
  Sender: FDA-Public Use
  Company Number: US-AMGEN-USASL2015053174

PATIENT
  Age: 62 Year
  Sex: Female

DRUGS (1)
  1. ENBREL [Suspect]
     Active Substance: ETANERCEPT
     Indication: RHEUMATOID ARTHRITIS
     Dosage: 50 MG, QWK
     Route: 065
     Dates: start: 201503, end: 201505

REACTIONS (3)
  - Haemorrhage [Not Recovered/Not Resolved]
  - Purulent discharge [Not Recovered/Not Resolved]
  - Infected dermal cyst [Not Recovered/Not Resolved]

NARRATIVE: CASE EVENT DATE: 20150515
